FAERS Safety Report 26174938 (Version 1)
Quarter: 2025Q4

REPORT INFORMATION
  Report Type: Report from Study
  Country: US (occurrence: None)
  Receive Date: 20251218
  Receipt Date: 20251218
  Transmission Date: 20260117
  Serious: No
  Sender: IONIS PHARMACEUTICALS
  Company Number: US-IONIS PHARMACEUTICALS, INC.-2025ION000047

PATIENT
  Age: 25 Year

DRUGS (1)
  1. TRYNGOLZA [Suspect]
     Active Substance: OLEZARSEN SODIUM
     Indication: Hypertriglyceridaemia
     Dosage: 80 MILLIGRAM, Q1M

REACTIONS (1)
  - Off label use [Not Recovered/Not Resolved]
